FAERS Safety Report 24298094 (Version 1)
Quarter: 2024Q3

REPORT INFORMATION
  Report Type: Spontaneous
  Country: ES (occurrence: ES)
  Receive Date: 20240909
  Receipt Date: 20240909
  Transmission Date: 20241017
  Serious: Yes (Hospitalization, Other)
  Sender: PFIZER
  Company Number: ES-ROCHE-3116348

PATIENT
  Age: 76 Year
  Sex: Male
  Weight: 85.6 kg

DRUGS (22)
  1. TRASTUZUMAB [Suspect]
     Active Substance: TRASTUZUMAB
     Indication: Gastrooesophageal cancer
     Dosage: 672 MG, EVERY 3 WEEKS
     Route: 042
     Dates: start: 20220530
  2. RUNIMOTAMAB [Suspect]
     Active Substance: RUNIMOTAMAB
     Indication: Gastrooesophageal cancer
     Dosage: 30 MG, EVERY 3 WEEKS
     Route: 042
     Dates: start: 20220531
  3. RUNIMOTAMAB [Suspect]
     Active Substance: RUNIMOTAMAB
     Dosage: 90 MG
     Route: 042
     Dates: start: 20220607
  4. CHOLECALCIFEROL [Concomitant]
     Active Substance: CHOLECALCIFEROL
     Indication: Vitamin D deficiency
     Dosage: 1 CAPSULE, AS NEEDED
     Route: 048
     Dates: start: 202105
  5. CIPROFLOXACIN [Concomitant]
     Active Substance: CIPROFLOXACIN
     Indication: Diarrhoea
     Dosage: 400 MG, EVERY 12 HOURS
     Route: 042
  6. DEXAMETHASONE [Concomitant]
     Active Substance: DEXAMETHASONE
     Dosage: 20 G, SINGLE
     Route: 042
     Dates: start: 20220531, end: 20220531
  7. DEXAMETHASONE [Concomitant]
     Active Substance: DEXAMETHASONE
     Dosage: 20 G, SINGLE
     Route: 042
     Dates: start: 20220607, end: 20220607
  8. DEXCHLORPHENIRAMINE [Concomitant]
     Active Substance: DEXCHLORPHENIRAMINE
     Dosage: 5 MG, SINGLE
     Route: 042
     Dates: start: 20220530, end: 20220530
  9. DEXCHLORPHENIRAMINE [Concomitant]
     Active Substance: DEXCHLORPHENIRAMINE
     Dosage: 5 MG, SINGLE
     Route: 042
     Dates: start: 20220531, end: 20220531
  10. DEXCHLORPHENIRAMINE [Concomitant]
     Active Substance: DEXCHLORPHENIRAMINE
     Dosage: 5 MG, SINGLE
     Route: 042
     Dates: start: 20220607, end: 20220607
  11. DOCONEXENT\ICOSAPENT [Concomitant]
     Active Substance: DOCONEXENT\ICOSAPENT
     Indication: Eye disorder
     Dosage: 1 CAPSULE, 1X/DAY
     Route: 048
     Dates: start: 201810
  12. DUTASTERIDE\TAMSULOSIN HYDROCHLORIDE [Concomitant]
     Active Substance: DUTASTERIDE\TAMSULOSIN HYDROCHLORIDE
     Indication: Benign prostatic hyperplasia
     Dosage: 1 TABLET, 1X/DAY
     Route: 048
     Dates: start: 201501
  13. EBASTINE [Concomitant]
     Active Substance: EBASTINE
     Indication: Rhinitis allergic
     Dosage: 1 TABLET, AS NEEDED
     Route: 048
     Dates: start: 201901
  14. FAMOTIDINE [Concomitant]
     Active Substance: FAMOTIDINE
     Dosage: 40 G, SINGLE
     Route: 042
     Dates: start: 20220531, end: 20220531
  15. FAMOTIDINE [Concomitant]
     Active Substance: FAMOTIDINE
     Dosage: 40 G, SINGLE
     Route: 042
     Dates: start: 20220607, end: 20220607
  16. LOPERAMIDE [Concomitant]
     Active Substance: LOPERAMIDE
     Indication: Diarrhoea
     Dosage: 2 MG, AS NEEDED
  17. METFORMIN HYDROCHLORIDE [Concomitant]
     Active Substance: METFORMIN HYDROCHLORIDE
     Indication: Type 2 diabetes mellitus
     Dosage: 0.5 TABLET, 1X/DAY
     Route: 048
     Dates: start: 202204
  18. OMEPRAZOLE [Concomitant]
     Active Substance: OMEPRAZOLE
     Indication: Hiatus hernia
     Dosage: 20 MG, 1X/DAY
     Route: 048
     Dates: start: 202105
  19. ACETAMINOPHEN [Concomitant]
     Active Substance: ACETAMINOPHEN
     Dosage: 1 G, SINGLE
     Route: 042
     Dates: start: 20220530, end: 20220530
  20. ACETAMINOPHEN [Concomitant]
     Active Substance: ACETAMINOPHEN
     Dosage: 1 G, SINGLE
     Route: 042
     Dates: start: 20220531, end: 20220531
  21. ACETAMINOPHEN [Concomitant]
     Active Substance: ACETAMINOPHEN
     Dosage: 1 G, SINGLE
     Route: 042
     Dates: start: 20220607, end: 20220607
  22. PREDNISONE [Concomitant]
     Active Substance: PREDNISONE
     Indication: Colorectal cancer
     Dosage: 15 MG, 1X/DAY
     Route: 048
     Dates: start: 20220613, end: 20220614

REACTIONS (1)
  - Cytokine release syndrome [Recovered/Resolved]

NARRATIVE: CASE EVENT DATE: 20220608
